FAERS Safety Report 20813672 (Version 1)
Quarter: 2022Q2

REPORT INFORMATION
  Report Type: Spontaneous
  Country: US (occurrence: US)
  Receive Date: 20220511
  Receipt Date: 20220511
  Transmission Date: 20220720
  Serious: No
  Sender: FDA-Public Use
  Company Number: US-BEH-2022145097

PATIENT

DRUGS (1)
  1. HIZENTRA [Suspect]
     Active Substance: HUMAN IMMUNOGLOBULIN G
     Dosage: UNK
     Route: 065
     Dates: start: 20220416

REACTIONS (2)
  - Infusion site extravasation [Unknown]
  - Infusion site pain [Recovered/Resolved]

NARRATIVE: CASE EVENT DATE: 20220416
